FAERS Safety Report 24686704 (Version 1)
Quarter: 2024Q4

REPORT INFORMATION
  Report Type: Spontaneous
  Country: DE (occurrence: DE)
  Receive Date: 20241202
  Receipt Date: 20241202
  Transmission Date: 20250115
  Serious: Yes (Life-Threatening, Other)
  Sender: UCB
  Company Number: None

PATIENT
  Sex: Male

DRUGS (9)
  1. LEVETIRACETAM [Suspect]
     Active Substance: LEVETIRACETAM
     Indication: Epilepsy
     Dosage: UNK
  2. LACOSAMIDE [Suspect]
     Active Substance: LACOSAMIDE
     Indication: Epilepsy
     Dosage: UNK
  3. LAMOTRIGINE [Suspect]
     Active Substance: LAMOTRIGINE
     Indication: Epilepsy
     Dosage: UNK
  4. ETHOSUXIMIDE [Suspect]
     Active Substance: ETHOSUXIMIDE
     Indication: Occipital lobe epilepsy
     Dosage: UNK
  5. VALPROATE [Suspect]
     Active Substance: VALPROIC ACID
     Indication: Occipital lobe epilepsy
     Dosage: UNK
  6. OXCARBAZEPINE [Suspect]
     Active Substance: OXCARBAZEPINE
     Indication: Occipital lobe epilepsy
     Dosage: UNK
  7. SULTHIAME [Suspect]
     Active Substance: SULTHIAME
     Indication: Occipital lobe epilepsy
     Dosage: UNK
  8. ESCITALOPRAM [Suspect]
     Active Substance: ESCITALOPRAM OXALATE
     Indication: Occipital lobe epilepsy
     Dosage: UNK
  9. ZONISAMIDE [Suspect]
     Active Substance: ZONISAMIDE
     Indication: Occipital lobe epilepsy
     Dosage: UNK

REACTIONS (14)
  - Suicidal ideation [Unknown]
  - Thinking abnormal [Unknown]
  - Seizure [Unknown]
  - Generalised tonic-clonic seizure [Unknown]
  - Hypokinesia [Unknown]
  - Tremor [Unknown]
  - Electroencephalogram abnormal [Unknown]
  - Rash [Unknown]
  - General physical health deterioration [Unknown]
  - Polydipsia [Unknown]
  - Panic attack [Unknown]
  - Nightmare [Unknown]
  - Depression [Unknown]
  - Drug ineffective [Unknown]
